FAERS Safety Report 8907746 (Version 1)
Quarter: 2012Q4

REPORT INFORMATION
  Report Type: 
  Country: US (occurrence: US)
  Receive Date: 20121113
  Receipt Date: 20121113
  Transmission Date: 20130627
  Serious: No
  Sender: FDA-Public Use
  Company Number: US-AMGEN-USASP2012010263

PATIENT
  Age: 70 Year
  Sex: Female

DRUGS (8)
  1. ENBREL [Suspect]
     Indication: RHEUMATOID ARTHRITIS
     Dosage: 50 mg, qwk
     Route: 058
  2. PAXIL [Concomitant]
     Dosage: 10 mg, UNK
     Route: 048
  3. PREDNISONE [Concomitant]
     Dosage: 10 mg, UNK
     Route: 048
  4. LOTREL [Concomitant]
     Route: 048
  5. MULTIVITAMIN                       /00097801/ [Concomitant]
     Route: 048
  6. VITAMIN C                          /00008001/ [Concomitant]
     Dosage: 500 mg, UNK
     Route: 048
  7. ALEVE [Concomitant]
     Dosage: 220 mg, UNK
  8. OMEGA 3                            /01334101/ [Concomitant]
     Route: 048

REACTIONS (1)
  - Lung infection [Unknown]
